FAERS Safety Report 16321759 (Version 1)
Quarter: 2019Q2

REPORT INFORMATION
  Report Type: Spontaneous
  Country: BR (occurrence: BR)
  Receive Date: 20190516
  Receipt Date: 20190516
  Transmission Date: 20190711
  Serious: Yes (Death, Other)
  Sender: FDA-Public Use
  Company Number: BR-SA-2019SA130958

PATIENT
  Age: 5 Month
  Sex: Male
  Weight: 7 kg

DRUGS (1)
  1. MYOZYME [Suspect]
     Active Substance: ALGLUCOSIDASE ALFA
     Indication: GLYCOGEN STORAGE DISEASE TYPE II
     Dosage: 20 MG/KG, QOW
     Route: 041

REACTIONS (3)
  - Cardiomyopathy [Fatal]
  - Blood test abnormal [Fatal]
  - Mechanical ventilation [Fatal]

NARRATIVE: CASE EVENT DATE: 20160914
